FAERS Safety Report 20363630 (Version 1)
Quarter: 2022Q1

REPORT INFORMATION
  Report Type: Spontaneous
  Country: CN (occurrence: None)
  Receive Date: 20220121
  Receipt Date: 20220121
  Transmission Date: 20220423
  Serious: Yes (Disabling)
  Sender: FDA-Public Use
  Company Number: 2022A028221

PATIENT
  Age: 28447 Day
  Sex: Female
  Weight: 60 kg

DRUGS (2)
  1. ESOMEPRAZOLE MAGNESIUM [Suspect]
     Active Substance: ESOMEPRAZOLE MAGNESIUM
     Indication: Chronic gastritis
     Route: 048
     Dates: start: 20211215, end: 20211224
  2. FLUPENTIXOL\MELITRACEN [Concomitant]
     Active Substance: FLUPENTIXOL\MELITRACEN
     Indication: Anxiety
     Route: 048
     Dates: start: 20211215, end: 20211224

REACTIONS (2)
  - Oedema [Recovering/Resolving]
  - Arthralgia [Recovering/Resolving]

NARRATIVE: CASE EVENT DATE: 20211220
